FAERS Safety Report 4650757-X (Version None)
Quarter: 2005Q2

REPORT INFORMATION
  Report Type: 
  Country: None (occurrence: None)
  Receive Date: 20050503
  Receipt Date: 20041019
  Transmission Date: 20051028
  Serious: Yes (Death, Other)
  Sender: FDA-Public Use
  Company Number: PHBS2004JP14015

PATIENT
  Age: 45 Year
  Sex: Female
  Weight: 46 kg

DRUGS (27)
  1. NEUPOGEN [Concomitant]
  2. ACYCLOVIR [Concomitant]
  3. NEORAL [Suspect]
     Indication: STEM CELL TRANSPLANT
     Dosage: 100 MG/D
     Route: 048
     Dates: start: 20041110, end: 20041111
  4. NEORAL [Suspect]
     Dosage: 150 MG/D
     Route: 048
     Dates: start: 20041112, end: 20041112
  5. NEORAL [Suspect]
     Dosage: 200 MG/D
     Route: 048
     Dates: start: 20041113, end: 20041118
  6. NEORAL [Suspect]
     Dosage: 175 MG/D
     Route: 048
     Dates: start: 20041119, end: 20041119
  7. NEORAL [Suspect]
     Dosage: 150 MG/D
     Route: 048
     Dates: start: 20041120, end: 20041121
  8. NEORAL [Suspect]
     Dosage: 125 MG/D
     Route: 048
     Dates: start: 20041122, end: 20041122
  9. NEORAL [Suspect]
     Dosage: 100 MG/D
     Route: 048
     Dates: start: 20041123, end: 20041206
  10. NEORAL [Suspect]
     Dosage: 150 MG/D
     Route: 048
     Dates: start: 20041207, end: 20041207
  11. NEORAL [Suspect]
     Dosage: 200 MG/D
     Route: 048
     Dates: start: 20041208, end: 20041208
  12. NEORAL [Suspect]
     Dosage: 100 MG/D
     Route: 048
     Dates: start: 20050115, end: 20050122
  13. NEORAL [Suspect]
     Dosage: 70 MG/D
     Route: 048
     Dates: start: 20050127, end: 20050210
  14. NEORAL [Suspect]
     Dosage: 20 MG/D
     Route: 048
     Dates: start: 20050303, end: 20050319
  15. NEORAL [Suspect]
     Dosage: 50 MG/D
     Route: 048
     Dates: start: 20050211, end: 20050302
  16. SANDIMMUNE [Suspect]
     Indication: STEM CELL TRANSPLANT
     Dosage: 100 MG/D
     Route: 041
     Dates: start: 20041017, end: 20041018
  17. SANDIMMUNE [Suspect]
     Dosage: 70 MG/D
     Route: 041
     Dates: start: 20041019, end: 20041022
  18. SANDIMMUNE [Suspect]
     Dosage: 60 MG/D
     Route: 041
     Dates: start: 20041023, end: 20041023
  19. SANDIMMUNE [Suspect]
     Dosage: 50 MG/D
     Route: 041
     Dates: start: 20041024, end: 20041119
  20. SANDIMMUNE [Suspect]
     Dosage: 100 MG/D
     Route: 041
     Dates: start: 20041209, end: 20041213
  21. SANDIMMUNE [Suspect]
     Dosage: 50 MG/D
     Route: 041
     Dates: start: 20041214, end: 20050114
  22. SANDIMMUNE [Suspect]
     Dosage: 140 MG/D
     Route: 041
     Dates: start: 20041013, end: 20041016
  23. ZOVIRAX [Concomitant]
     Dosage: 1000 MG/D
     Route: 048
     Dates: start: 20041007, end: 20041012
  24. ZOVIRAX [Concomitant]
     Dosage: 750 MG/D
     Route: 042
     Dates: start: 20041013
  25. DIFLUCAN [Concomitant]
     Dosage: 200 MG/D
     Route: 048
     Dates: start: 20041004, end: 20041010
  26. PRODIF [Concomitant]
     Dosage: 200 MG/D
     Route: 042
     Dates: start: 20041015
  27. CRAVIT [Concomitant]
     Dosage: 300 MG/D
     Route: 048
     Dates: start: 20041004, end: 20041010

REACTIONS (23)
  - ALANINE AMINOTRANSFERASE INCREASED [None]
  - ASPARTATE AMINOTRANSFERASE INCREASED [None]
  - BLOOD ALKALINE PHOSPHATASE INCREASED [None]
  - BLOOD BETA-D-GLUCAN INCREASED [None]
  - BLOOD BILIRUBIN INCREASED [None]
  - BLOOD CREATININE INCREASED [None]
  - BLOOD CULTURE POSITIVE [None]
  - BLOOD LACTATE DEHYDROGENASE INCREASED [None]
  - BLOOD PRESSURE DECREASED [None]
  - BLOOD UREA INCREASED [None]
  - GRAFT VERSUS HOST DISEASE [None]
  - HYPOTONIA [None]
  - HYPOXIA [None]
  - INTERSTITIAL LUNG DISEASE [None]
  - LIVER DISORDER [None]
  - NEUTROPENIA [None]
  - PNEUMOCYSTIS JIROVECI PNEUMONIA [None]
  - PYREXIA [None]
  - RED BLOOD CELL SCHISTOCYTES PRESENT [None]
  - RENAL DISORDER [None]
  - SEPSIS [None]
  - STAPHYLOCOCCAL SEPSIS [None]
  - THROMBOTIC MICROANGIOPATHY [None]
